FAERS Safety Report 10901710 (Version 2)
Quarter: 2015Q1

REPORT INFORMATION
  Report Type: Report from Study
  Country: UG (occurrence: UG)
  Receive Date: 20150310
  Receipt Date: 20150325
  Transmission Date: 20150721
  Serious: Yes (Death)
  Sender: FDA-Public Use
  Company Number: UG-009507513-1502UGA010752

PATIENT
  Age: 32 Year
  Sex: Female
  Weight: 39 kg

DRUGS (9)
  1. EMTRICITABINE [Concomitant]
     Active Substance: EMTRICITABINE
     Dosage: UNK
     Dates: start: 20150107, end: 20150111
  2. ISONIAZID. [Suspect]
     Active Substance: ISONIAZID
     Indication: HIV INFECTION
     Dosage: UNK
     Route: 048
     Dates: start: 20150107, end: 20150111
  3. TENOFOVIR [Concomitant]
     Active Substance: TENOFOVIR
     Dosage: UNK
     Dates: start: 20150107, end: 20150111
  4. FLUCONAZOLE. [Suspect]
     Active Substance: FLUCONAZOLE
     Indication: HIV INFECTION
     Dosage: UNK
     Route: 065
     Dates: start: 20150107, end: 20150111
  5. EFAVIRENZ [Suspect]
     Active Substance: EFAVIRENZ
     Indication: HIV INFECTION
     Dosage: UNK
     Route: 048
     Dates: start: 20150107, end: 20150111
  6. PYRIDOXINE [Concomitant]
     Active Substance: PYRIDOXINE
     Dosage: UNK
     Dates: start: 20150107, end: 20150111
  7. RALTEGRAVIR POTASSIUM [Suspect]
     Active Substance: RALTEGRAVIR POTASSIUM
     Indication: HIV INFECTION
     Dosage: UNK
     Route: 048
     Dates: start: 20150107, end: 20150111
  8. AZITHROMYCIN [Suspect]
     Active Substance: AZITHROMYCIN ANHYDROUS
     Indication: HIV INFECTION
     Dosage: UNK
     Route: 065
     Dates: start: 20150107, end: 20150111
  9. ALBENDAZOLE [Suspect]
     Active Substance: ALBENDAZOLE
     Indication: HIV INFECTION
     Dosage: UNK
     Route: 065
     Dates: start: 20050107, end: 20150111

REACTIONS (1)
  - Sudden death [Fatal]

NARRATIVE: CASE EVENT DATE: 20150112
